FAERS Safety Report 6098461-8 (Version None)
Quarter: 2009Q1

REPORT INFORMATION
  Report Type: 
  Country: None (occurrence: None)
  Receive Date: 20090302
  Receipt Date: 20090218
  Transmission Date: 20090719
  Serious: Yes (Hospitalization)
  Sender: FDA-Public Use
  Company Number: US-JNJFOC-20081106201

PATIENT
  Sex: Female
  Weight: 76.66 kg

DRUGS (4)
  1. REMICADE [Suspect]
     Route: 042
  2. REMICADE [Suspect]
     Route: 042
  3. REMICADE [Suspect]
     Route: 042
  4. REMICADE [Suspect]
     Indication: PSORIATIC ARTHROPATHY
     Route: 042

REACTIONS (5)
  - CONJUNCTIVAL HAEMORRHAGE [None]
  - INFECTION [None]
  - OSTEOARTHRITIS [None]
  - PEMPHIGOID [None]
  - PNEUMONIA [None]
